FAERS Safety Report 10923992 (Version 1)
Quarter: 2015Q1

REPORT INFORMATION
  Report Type: Spontaneous
  Country: US (occurrence: None)
  Receive Date: 20150316
  Receipt Date: 20150316
  Transmission Date: 20150721
  Serious: Yes (Death)
  Sender: FDA-Public Use
  Company Number: None

PATIENT
  Age: 61 Year
  Sex: Male
  Weight: 95 kg

DRUGS (1)
  1. FERAHEME [Suspect]
     Active Substance: FERUMOXYTOL NON-STOICHIOMETRIC MAGNETITE
     Indication: IRON DEFICIENCY
     Dosage: @12:30 - 2 PM
     Route: 042
     Dates: start: 20150217

REACTIONS (4)
  - Speech disorder [None]
  - Vomiting [None]
  - Respiratory distress [None]
  - Feeling abnormal [None]

NARRATIVE: CASE EVENT DATE: 20150217
